FAERS Safety Report 21700683 (Version 1)
Quarter: 2022Q4

REPORT INFORMATION
  Report Type: Spontaneous
  Country: FR (occurrence: FR)
  Receive Date: 20221208
  Receipt Date: 20221208
  Transmission Date: 20230112
  Serious: Yes (Death)
  Sender: FDA-Public Use
  Company Number: None

PATIENT
  Age: 65 Year
  Sex: Male

DRUGS (4)
  1. AMOXICILLIN [Suspect]
     Active Substance: AMOXICILLIN
     Indication: Dermo-hypodermitis
     Dosage: 1.5 GM, FREQUENCY TIME 1 DAY, DURATION 10 DAYS,, 500 MG MORNING, NOON AND EVENING
     Dates: start: 20201204, end: 20201214
  2. AUGMENTIN [Suspect]
     Active Substance: AMOXICILLIN\CLAVULANATE POTASSIUM
     Indication: Dermo-hypodermitis
     Dosage: 3 GM, FREQUENCY TIME 1 DAY, DURATION 10 DAYS, 1G MORNING, NOON AND EVENING
     Dates: start: 20201204, end: 20201214
  3. IPILIMUMAB [Suspect]
     Active Substance: IPILIMUMAB
     Indication: Metastatic malignant melanoma
     Dosage: 1 DOSAGE FORM
     Dates: start: 20201215
  4. NIVOLUMAB [Suspect]
     Active Substance: NIVOLUMAB
     Indication: Metastatic malignant melanoma
     Dosage: 1 DOSAGE FORM
     Dates: start: 20201215, end: 202012

REACTIONS (1)
  - Rash maculo-papular [Fatal]

NARRATIVE: CASE EVENT DATE: 20201218
